FAERS Safety Report 8210849-5 (Version None)
Quarter: 2012Q1

REPORT INFORMATION
  Report Type: 
  Country: None (occurrence: None)
  Receive Date: 20120315
  Receipt Date: 20120312
  Transmission Date: 20120608
  Serious: No
  Sender: FDA-Public Use
  Company Number: US-BIOGENIDEC-2012BI008879

PATIENT
  Age: 31 Year
  Sex: Female

DRUGS (3)
  1. TYSABRI [Suspect]
     Indication: MULTIPLE SCLEROSIS
     Route: 042
     Dates: start: 20070829, end: 20070829
  2. TYSABRI [Suspect]
     Route: 042
     Dates: start: 20071211, end: 20071211
  3. TYSABRI [Suspect]
     Route: 042
     Dates: start: 20091112, end: 20110825

REACTIONS (6)
  - ARTHRALGIA [None]
  - DIZZINESS [None]
  - FATIGUE [None]
  - ADVERSE DRUG REACTION [None]
  - ABDOMINAL PAIN UPPER [None]
  - MENSTRUAL DISORDER [None]
